FAERS Safety Report 9809084 (Version 1)
Quarter: 2014Q1

REPORT INFORMATION
  Report Type: Spontaneous
  Country: NL (occurrence: NL)
  Receive Date: 20140110
  Receipt Date: 20140110
  Transmission Date: 20141002
  Serious: Yes (Other)
  Sender: FDA-Public Use
  Company Number: PHHY2014NL002250

PATIENT
  Sex: 0

DRUGS (4)
  1. OMEPRAZOLE SANDOZ [Suspect]
     Dosage: 40 MG, UNK
     Route: 048
  2. ATENOLOL [Suspect]
  3. IRBESARTAN [Suspect]
  4. SIMVASTATIN [Suspect]

REACTIONS (4)
  - Osteoporosis [Not Recovered/Not Resolved]
  - Paraesthesia [Not Recovered/Not Resolved]
  - Blood calcium increased [Not Recovered/Not Resolved]
  - Blood phosphorus decreased [Not Recovered/Not Resolved]
